FAERS Safety Report 4273119-6 (Version None)
Quarter: 2004Q1

REPORT INFORMATION
  Report Type: 
  Country: None (occurrence: None)
  Receive Date: 20040116
  Receipt Date: 20040112
  Transmission Date: 20041129
  Serious: Yes (Other)
  Sender: FDA-Public Use
  Company Number: US-GLAXOSMITHKLINE-A0492602A

PATIENT
  Age: 33 Year
  Sex: Female

DRUGS (2)
  1. WELLBUTRIN [Suspect]
     Indication: DEPRESSION
     Dosage: 100TAB TWICE PER DAY
     Route: 048
     Dates: start: 20030821, end: 20031031
  2. PROZAC [Concomitant]
     Dosage: 80MG PER DAY

REACTIONS (5)
  - BITE [None]
  - CONFUSIONAL STATE [None]
  - CYANOSIS [None]
  - GRAND MAL CONVULSION [None]
  - RESPIRATORY ARREST [None]
